FAERS Safety Report 9393993 (Version 2)
Quarter: 2013Q3

REPORT INFORMATION
  Report Type: Spontaneous
  Country: US (occurrence: US)
  Receive Date: 20130710
  Receipt Date: 20130723
  Transmission Date: 20140515
  Serious: Yes (Death)
  Sender: FDA-Public Use
  Company Number: CHPA2013US010807

PATIENT
  Age: 82 Year
  Sex: Female

DRUGS (1)
  1. PERDIEM - UNKNOWN [Suspect]
     Dosage: UNK, UNK

REACTIONS (1)
  - Cor pulmonale [Fatal]
